FAERS Safety Report 7410013-3 (Version None)
Quarter: 2011Q2

REPORT INFORMATION
  Report Type: 
  Country: None (occurrence: None)
  Receive Date: 20110404
  Receipt Date: 20110322
  Transmission Date: 20111010
  Serious: Yes (Hospitalization)
  Sender: FDA-Public Use
  Company Number: DSU-2011-01642

PATIENT
  Age: 40 Year
  Sex: Male
  Weight: 111.1313 kg

DRUGS (3)
  1. BACTRIM DS [Suspect]
     Indication: STAPHYLOCOCCAL INFECTION
     Dosage: 2 DOSAGE FORMS (1 DOSAGE FORMS,BID),PER ORAL
     Route: 048
     Dates: start: 20110223, end: 20110228
  2. BENICAR [Suspect]
     Indication: HYPERTENSION
     Dosage: PER ORAL ; PER ORAL
     Route: 048
     Dates: start: 20090101, end: 20100101
  3. BENICAR [Suspect]
     Indication: HYPERTENSION
     Dosage: PER ORAL ; PER ORAL
     Route: 048
     Dates: start: 20110226, end: 20110226

REACTIONS (5)
  - VISUAL IMPAIRMENT [None]
  - HEART RATE INCREASED [None]
  - GASTRIC DISORDER [None]
  - SWOLLEN TONGUE [None]
  - BODY TEMPERATURE INCREASED [None]
